FAERS Safety Report 4454718-5 (Version None)
Quarter: 2004Q3

REPORT INFORMATION
  Report Type: 
  Country: None (occurrence: None)
  Receive Date: 20040920
  Receipt Date: 20040920
  Transmission Date: 20050211
  Serious: Yes (Hospitalization)
  Sender: FDA-Public Use
  Company Number: None

PATIENT
  Age: 68 Year
  Sex: Male
  Weight: 89.1 kg

DRUGS (3)
  1. DIGOXIN [Suspect]
     Indication: ARRHYTHMIA
     Dosage: 0.25 MG QD ORAL
     Route: 048
     Dates: start: 20010819, end: 20040326
  2. WARFARIN SODIUM [Suspect]
     Indication: AORTIC VALVE REPLACEMENT
     Dosage: 2.5 MG QD ORAL
     Route: 048
     Dates: start: 20010910, end: 20040917
  3. AMIODARONE [Concomitant]

REACTIONS (9)
  - BRADYCARDIA [None]
  - DIZZINESS [None]
  - DRUG TOXICITY [None]
  - FACE INJURY [None]
  - FALL [None]
  - SKIN LACERATION [None]
  - SYNCOPE [None]
  - THERAPEUTIC AGENT TOXICITY [None]
  - WOUND HAEMORRHAGE [None]
